FAERS Safety Report 6738851-0 (Version None)
Quarter: 2010Q2

REPORT INFORMATION
  Report Type: 
  Country: None (occurrence: None)
  Receive Date: 20100524
  Receipt Date: 20100513
  Transmission Date: 20101027
  Serious: Yes (Hospitalization, Other)
  Sender: FDA-Public Use
  Company Number: PHHY2010BR31277

PATIENT
  Age: 78 Year
  Sex: Male
  Weight: 51 kg

DRUGS (7)
  1. SANDIMMUNE [Suspect]
     Indication: PLATELET COUNT DECREASED
     Dosage: 50 MG, UNK
     Dates: start: 20100301
  2. SECONTEX [Concomitant]
     Indication: PROSTATE INFECTION
     Dosage: 0.4 MG, ONE TABLET DAILY
     Route: 048
  3. FINASTERIDE [Concomitant]
     Indication: PROSTATE INFECTION
     Dosage: 5 MG (1 TABLET DAILY)
     Route: 048
  4. DEFLAZACORT [Concomitant]
     Indication: BRAIN STEM SYNDROME
     Dosage: 30 MG, HALF A TABLET DAILY
     Route: 048
  5. VITAMIN B6 [Concomitant]
     Indication: BRAIN STEM SYNDROME
     Dosage: 1 CAPSULE DAILY
  6. FOLIC ACID [Concomitant]
     Dosage: 1 CAPSULE DAILY
  7. VITAMIN B-12 [Concomitant]
     Dosage: 50 MG, MANIPULATED 20 DROPS
     Route: 060

REACTIONS (1)
  - INTESTINAL OPERATION [None]
